FAERS Safety Report 23085158 (Version 1)
Quarter: 2023Q4

REPORT INFORMATION
  Report Type: Spontaneous
  Country: CN (occurrence: CN)
  Receive Date: 20231019
  Receipt Date: 20231019
  Transmission Date: 20240110
  Serious: Yes (Other)
  Sender: FDA-Public Use
  Company Number: CN-BAYER-2023A127739

PATIENT
  Sex: Female

DRUGS (1)
  1. AVELOX [Suspect]
     Active Substance: MOXIFLOXACIN HYDROCHLORIDE
     Route: 048

REACTIONS (21)
  - Motor neurone disease [None]
  - Neuropathy peripheral [None]
  - Hypoaesthesia [None]
  - Hypoaesthesia oral [None]
  - Insomnia [None]
  - Anxiety [None]
  - Myalgia [None]
  - Tinnitus [None]
  - Palpitations [None]
  - Pain of skin [None]
  - Drug hypersensitivity [None]
  - Depressed mood [None]
  - Hair colour changes [None]
  - Fatigue [None]
  - Head titubation [None]
  - Arthralgia [None]
  - Somnolence [None]
  - Ear discomfort [None]
  - Muscle twitching [None]
  - Suffocation feeling [None]
  - Limb discomfort [None]

NARRATIVE: CASE EVENT DATE: 20230101
